FAERS Safety Report 7599419-X (Version None)
Quarter: 2011Q3

REPORT INFORMATION
  Report Type: 
  Country: None (occurrence: None)
  Receive Date: 20110711
  Receipt Date: 20081001
  Transmission Date: 20111222
  Serious: Yes (Other)
  Sender: FDA-Public Use
  Company Number: US-BAYER-201040700NA

PATIENT
  Age: 48 Year
  Sex: Female
  Weight: 70 kg

DRUGS (17)
  1. PHENYLEPHRINE HCL [Concomitant]
     Dosage: UNK
     Dates: start: 20050519
  2. TRASYLOL [Suspect]
     Indication: CORONARY ARTERY BYPASS
     Dosage: 200 ML LOADING DOSE
     Route: 042
     Dates: start: 20050519, end: 20050519
  3. CIPROFLOXACIN [Concomitant]
     Dosage: 500 MG, UNK
     Dates: start: 20050430
  4. RED BLOOD CELLS [Concomitant]
     Dosage: 6 U, ONCE
     Route: 042
     Dates: start: 20050519
  5. HYDROCODONE BITARTRATE [Concomitant]
     Dosage: UNK
     Dates: start: 20050101
  6. CONTRAST MEDIA [Concomitant]
     Indication: CARDIAC VENTRICULOGRAM LEFT
  7. HEPARIN [Concomitant]
     Dosage: UNK
     Dates: start: 20050519
  8. CONTRAST MEDIA [Concomitant]
     Indication: ARTERIOGRAM CORONARY
     Dosage: UNK
     Dates: start: 20050428
  9. DIOVAN [Concomitant]
     Dosage: 80 MG, UNK
     Dates: start: 20030101
  10. TRASYLOL [Suspect]
     Indication: ANEURYSM REPAIR
     Dosage: 50 ML/HOUR INFUSION
     Route: 042
     Dates: start: 20050519, end: 20050519
  11. AMBIEN [Concomitant]
  12. ALBUMIN (HUMAN) [Concomitant]
     Dosage: UNK
     Dates: start: 20050519
  13. MANNITOL [Concomitant]
     Dosage: 12.5 G, UNK
     Dates: start: 20050519
  14. GLUCOPHAGE [Concomitant]
     Dosage: 500 MG, UNK
     Dates: start: 20030101
  15. VYTORIN [Concomitant]
  16. FRESH FROZEN PLASMA [Concomitant]
     Dosage: 2 U, ONCE
     Route: 042
     Dates: start: 20050519
  17. PLATELETS [Concomitant]
     Dosage: 2 U, ONCE
     Route: 042
     Dates: start: 20050519

REACTIONS (7)
  - PAIN [None]
  - ANXIETY [None]
  - STRESS [None]
  - CEREBROVASCULAR ACCIDENT [None]
  - INJURY [None]
  - SCOTOMA [None]
  - EMOTIONAL DISTRESS [None]
